FAERS Safety Report 5322765-7 (Version None)
Quarter: 2007Q2

REPORT INFORMATION
  Report Type: 
  Country: None (occurrence: None)
  Receive Date: 20070511
  Receipt Date: 20070430
  Transmission Date: 20071010
  Serious: Yes (Other)
  Sender: FDA-Public Use
  Company Number: US-PFIZER INC-2007009896

PATIENT
  Sex: Female
  Weight: 73.5 kg

DRUGS (12)
  1. CORTEF [Suspect]
     Indication: ADDISON'S DISEASE
  2. PREDNISONE TAB [Suspect]
     Indication: ADDISON'S DISEASE
     Dates: start: 20070101, end: 20070101
  3. TOPROL-XL [Suspect]
     Dates: start: 20070101, end: 20070101
  4. FLORINEF [Concomitant]
  5. SYNTHROID [Concomitant]
  6. METOPROLOL SUCCINATE [Concomitant]
  7. AVAPRO [Concomitant]
  8. ZOCOR [Concomitant]
  9. ACETYLSALICYLIC ACID SRT [Concomitant]
  10. CENTRUM SILVER [Concomitant]
  11. ACIPHEX [Concomitant]
  12. CALCIUM WITH VITAMIN D [Concomitant]

REACTIONS (3)
  - ADDISON'S DISEASE [None]
  - BONE DENSITY DECREASED [None]
  - LETHARGY [None]
